FAERS Safety Report 14833871 (Version 1)
Quarter: 2018Q2

REPORT INFORMATION
  Report Type: Spontaneous
  Country: US (occurrence: US)
  Receive Date: 20180501
  Receipt Date: 20180501
  Transmission Date: 20180711
  Serious: No
  Sender: FDA-Public Use
  Company Number: US-ROCHE-2023745

PATIENT
  Age: 54 Year
  Sex: Female

DRUGS (4)
  1. COMPAZINE [Concomitant]
     Active Substance: PROCHLORPERAZINE MALEATE
     Indication: NAUSEA
     Dosage: ONGOING: NO
     Route: 065
  2. AVASTIN [Suspect]
     Active Substance: BEVACIZUMAB
     Indication: OVARIAN CANCER STAGE I
     Route: 065
     Dates: start: 20171103, end: 20171105
  3. AVASTIN [Suspect]
     Active Substance: BEVACIZUMAB
     Indication: METASTASES TO LUNG
  4. ZOFRAN [Concomitant]
     Active Substance: ONDANSETRON HYDROCHLORIDE
     Indication: NAUSEA
     Dosage: ONGOING: UNKNOWN
     Route: 065

REACTIONS (10)
  - Mental disorder [Unknown]
  - Treatment noncompliance [Unknown]
  - Asthenia [Unknown]
  - Sleep disorder [Unknown]
  - Anxiety [Unknown]
  - Constipation [Unknown]
  - Agitation [Unknown]
  - Dizziness [Unknown]
  - Confusional state [Unknown]
  - Ill-defined disorder [Unknown]
